FAERS Safety Report 7957945-5 (Version None)
Quarter: 2011Q4

REPORT INFORMATION
  Report Type: 
  Country: None (occurrence: None)
  Receive Date: 20111205
  Receipt Date: 20111130
  Transmission Date: 20120403
  Serious: Yes (Death, Hospitalization)
  Sender: FDA-Public Use
  Company Number: JP-BAYER-201013666BYL

PATIENT
  Age: 74 Year
  Sex: Female
  Weight: 35.8 kg

DRUGS (12)
  1. OXYCONTIN [Concomitant]
     Dosage: 10 MG (DAILY DOSE), , ORAL
     Route: 048
     Dates: start: 20100531, end: 20100607
  2. FENTANYL-100 [Concomitant]
     Indication: ANALGESIC THERAPY
     Route: 062
     Dates: start: 20100607
  3. NEXAVAR [Suspect]
     Indication: HEPATIC NEOPLASM MALIGNANT
     Dosage: 400 MG (DAILY DOSE), , ORAL
     Route: 048
     Dates: start: 20100528, end: 20100718
  4. AMOXAPINE [Concomitant]
     Indication: ANALGESIC THERAPY
     Dosage: 20 MG (DAILY DOSE), , ORAL
     Route: 048
     Dates: start: 20100602
  5. MAGMITT [Concomitant]
     Indication: CONSTIPATION
     Dosage: 1980 MG (DAILY DOSE), , ORAL
     Route: 048
     Dates: start: 20100614
  6. ZYPREXA [Concomitant]
     Indication: ANALGESIC THERAPY
     Dosage: 2.5 MG (DAILY DOSE), , ORAL
     Route: 048
     Dates: start: 20100611
  7. GOSHAJINKIGAN [Concomitant]
     Indication: ANALGESIC THERAPY
     Dosage: 5.0 G (DAILY DOSE), , ORAL
     Route: 048
     Dates: start: 20100612
  8. OXINORM [Concomitant]
     Indication: ANALGESIC THERAPY
     Dosage: 25 MG (DAILY DOSE), , ORAL
     Route: 048
     Dates: start: 20100608
  9. DECADRON [Concomitant]
     Dosage: 1 MG (DAILY DOSE), , ORAL
     Route: 048
     Dates: start: 20100608, end: 20100621
  10. OPALMON [Concomitant]
     Indication: ANALGESIC THERAPY
     Dosage: 15 ?G (DAILY DOSE), , ORAL
     Route: 048
     Dates: start: 20100603
  11. GABAPENTIN [Concomitant]
     Indication: ANALGESIC THERAPY
     Dosage: 400 MG (DAILY DOSE), , ORAL
     Route: 048
     Dates: start: 20100607
  12. ADALAT [Concomitant]
     Dosage: 20 MG (DAILY DOSE), , ORAL
     Route: 048
     Dates: start: 20100603, end: 20100610

REACTIONS (3)
  - BLOOD PRESSURE INCREASED [None]
  - HEPATIC NEOPLASM MALIGNANT [None]
  - COLITIS ISCHAEMIC [None]
